FAERS Safety Report 9692374 (Version 2)
Quarter: 2014Q1

REPORT INFORMATION
  Report Type: Spontaneous
  Country: US (occurrence: US)
  Receive Date: 20131118
  Receipt Date: 20140102
  Transmission Date: 20141002
  Serious: No
  Sender: FDA-Public Use
  Company Number: US-PFIZER INC-2013327575

PATIENT
  Age: 66 Year
  Sex: Female
  Weight: 53.52 kg

DRUGS (3)
  1. CHANTIX [Suspect]
     Indication: SMOKING CESSATION THERAPY
     Dosage: UNK
     Dates: start: 20131111
  2. NICOTINE [Suspect]
     Indication: SMOKING CESSATION THERAPY
     Dosage: UNK
     Dates: start: 201307, end: 2013
  3. PROPRANOLOL [Concomitant]
     Indication: MIGRAINE
     Dosage: 80MG DAILY AT NIGHT AND 40MG AT DAYTIME IF NEEDED
     Dates: start: 2010

REACTIONS (2)
  - Agitation [Recovered/Resolved]
  - Drug ineffective [Unknown]
